FAERS Safety Report 15100414 (Version 2)
Quarter: 2018Q3

REPORT INFORMATION
  Report Type: Other
  Country: AU (occurrence: AU)
  Receive Date: 20180703
  Receipt Date: 20180706
  Transmission Date: 20181010
  Serious: Yes (Other)
  Sender: FDA-Public Use
  Company Number: AU-ASTELLAS-2018US029245

PATIENT
  Sex: Female
  Weight: 102 kg

DRUGS (7)
  1. GILENYA [Suspect]
     Active Substance: FINGOLIMOD HYDROCHLORIDE
     Indication: RELAPSING-REMITTING MULTIPLE SCLEROSIS
     Dosage: UNK, UNKNOWN FREQ.
     Route: 048
     Dates: start: 20120529
  2. VITAMIN D                          /00107901/ [Concomitant]
     Active Substance: ERGOCALCIFEROL
     Indication: PRODUCT USED FOR UNKNOWN INDICATION
     Dosage: UNK UNK, UNKNOWN FREQ.
     Route: 065
  3. VESICARE [Concomitant]
     Active Substance: SOLIFENACIN SUCCINATE
     Indication: PRODUCT USED FOR UNKNOWN INDICATION
     Dosage: UNK UNK, UNKNOWN FREQ.
     Route: 065
  4. BETMIGA [Suspect]
     Active Substance: MIRABEGRON
     Indication: PRODUCT USED FOR UNKNOWN INDICATION
     Dosage: UNK, UNKNOWN FREQ.
     Route: 065
  5. TAMOXIFEN                          /00388702/ [Suspect]
     Active Substance: TAMOXIFEN
     Indication: PRODUCT USED FOR UNKNOWN INDICATION
     Dosage: UNK, UNKNOWN FREQ.
     Route: 065
  6. VITAMIN B12 [Concomitant]
     Active Substance: CYANOCOBALAMIN
     Indication: PRODUCT USED FOR UNKNOWN INDICATION
     Dosage: UNK UNK, UNKNOWN FREQ.
     Route: 065
  7. VITAMIN C [Concomitant]
     Active Substance: ASCORBIC ACID
     Indication: PRODUCT USED FOR UNKNOWN INDICATION
     Dosage: UNK UNK, UNKNOWN FREQ.
     Route: 065

REACTIONS (39)
  - Mobility decreased [Unknown]
  - Poor quality sleep [Unknown]
  - Viral infection [Unknown]
  - Weight decreased [Unknown]
  - White blood cell count decreased [Unknown]
  - Leukopenia [Unknown]
  - Thirst [Unknown]
  - Uhthoff^s phenomenon [Unknown]
  - Intracranial pressure increased [Unknown]
  - Asthenia [Unknown]
  - Depressed mood [Unknown]
  - Fatigue [Unknown]
  - Balance disorder [Unknown]
  - Temperature intolerance [Unknown]
  - Erythema [Unknown]
  - Multiple sclerosis relapse [Unknown]
  - Breast cancer [Unknown]
  - Body temperature increased [Unknown]
  - Frustration tolerance decreased [Unknown]
  - Gait disturbance [Unknown]
  - Onychomycosis [Unknown]
  - Pain [Unknown]
  - Urinary incontinence [Unknown]
  - Fall [Unknown]
  - Rib fracture [Unknown]
  - Anxiety [Unknown]
  - Bone density decreased [Unknown]
  - Cognitive disorder [Unknown]
  - Prescribed underdose [Unknown]
  - Peroneal nerve palsy [Unknown]
  - Osteopenia [Unknown]
  - Weight increased [Unknown]
  - Cellulitis [Unknown]
  - Concomitant disease aggravated [Unknown]
  - Diplopia [Unknown]
  - Herpes zoster [Unknown]
  - Infection [Unknown]
  - Feeling abnormal [Unknown]
  - Hunger [Unknown]
